FAERS Safety Report 11291276 (Version 6)
Quarter: 2015Q4

REPORT INFORMATION
  Report Type: Report from Study
  Country: US (occurrence: US)
  Receive Date: 20150722
  Receipt Date: 20151014
  Transmission Date: 20160304
  Serious: Yes (Other)
  Sender: FDA-Public Use
  Company Number: US-BIOGENIDEC-2015BI094814

PATIENT
  Age: 47 Year
  Sex: Female

DRUGS (4)
  1. LINZESS [Concomitant]
     Active Substance: LINACLOTIDE
  2. TYSABRI [Suspect]
     Active Substance: NATALIZUMAB
     Indication: MULTIPLE SCLEROSIS
     Route: 042
     Dates: start: 20090917, end: 20150710
  3. AMPYRA [Concomitant]
     Active Substance: DALFAMPRIDINE
     Indication: GAIT DISTURBANCE
  4. BACLOFEN. [Concomitant]
     Active Substance: BACLOFEN
     Indication: MUSCLE SPASTICITY

REACTIONS (6)
  - Fear of injection [Not Recovered/Not Resolved]
  - Feeding disorder [Not Recovered/Not Resolved]
  - Stress [Not Recovered/Not Resolved]
  - Anal cancer [Not Recovered/Not Resolved]
  - Radiation menopause [Not Recovered/Not Resolved]
  - Radiation skin injury [Not Recovered/Not Resolved]

NARRATIVE: CASE EVENT DATE: 20150727
